FAERS Safety Report 9599405 (Version 1)
Quarter: 2013Q4

REPORT INFORMATION
  Report Type: Spontaneous
  Country: US (occurrence: US)
  Receive Date: 20131004
  Receipt Date: 20131004
  Transmission Date: 20140711
  Serious: No
  Sender: FDA-Public Use
  Company Number: US-AMGEN-USASP2013029390

PATIENT
  Age: 64 Year
  Sex: Male
  Weight: 88.44 kg

DRUGS (10)
  1. ENBREL [Suspect]
     Indication: PRODUCT USED FOR UNKNOWN INDICATION
     Dosage: 50 MG, QWK
     Route: 058
  2. ARTHROTEC [Concomitant]
     Dosage: 75, UNK
  3. FOLIC ACID [Concomitant]
     Dosage: UNK
  4. METHOTREXATE [Concomitant]
     Dosage: 2.5 MG, UNK
  5. NASONEX [Concomitant]
     Dosage: 50 MUG/AC, UNK
  6. PATANOL [Concomitant]
     Dosage: UNK
  7. FLOMAX                             /00889901/ [Concomitant]
     Dosage: 0.4 MG, UNK
  8. CLARITIN                           /00413701/ [Concomitant]
     Dosage: 10 MG, UNK
  9. LORAZEPAM [Concomitant]
     Dosage: 1 MG, UNK
  10. OMEPRAZOLE [Concomitant]
     Dosage: 10 MG, UNK

REACTIONS (2)
  - Fatigue [Not Recovered/Not Resolved]
  - Bronchitis [Recovered/Resolved]
